FAERS Safety Report 14125675 (Version 6)
Quarter: 2018Q4

REPORT INFORMATION
  Report Type: Spontaneous
  Country: US (occurrence: US)
  Receive Date: 20171025
  Receipt Date: 20181105
  Transmission Date: 20190204
  Serious: Yes (Other)
  Sender: FDA-Public Use
  Company Number: US-GLAXOSMITHKLINE-US2017GSK162417

PATIENT
  Age: 52 Year
  Sex: Female

DRUGS (2)
  1. BENLYSTA [Suspect]
     Active Substance: BELIMUMAB
     Indication: SYSTEMIC LUPUS ERYTHEMATOSUS
     Dosage: UNK UNK, WE
     Route: 042
     Dates: start: 201712
  2. BENLYSTA [Suspect]
     Active Substance: BELIMUMAB
     Indication: SYSTEMIC LUPUS ERYTHEMATOSUS
     Dosage: UNK, CYC
     Route: 042
     Dates: start: 201508, end: 201608

REACTIONS (24)
  - Gait disturbance [Unknown]
  - Malaise [Unknown]
  - Impaired driving ability [Unknown]
  - Drug intolerance [Unknown]
  - Nausea [Recovered/Resolved]
  - Product storage error [Unknown]
  - Mental disorder [Not Recovered/Not Resolved]
  - Drug effect increased [Unknown]
  - Feeling cold [Unknown]
  - Fatigue [Unknown]
  - Adverse drug reaction [Unknown]
  - Pain [Unknown]
  - Headache [Unknown]
  - Influenza like illness [Unknown]
  - Mental impairment [Unknown]
  - Poor quality product administered [Unknown]
  - Product dose omission [Unknown]
  - Mood swings [Unknown]
  - Dizziness [Recovered/Resolved]
  - Contusion [Not Recovered/Not Resolved]
  - Feeling hot [Unknown]
  - Skin disorder [Unknown]
  - Hunger [Unknown]
  - Feeling abnormal [Not Recovered/Not Resolved]

NARRATIVE: CASE EVENT DATE: 201508
